FAERS Safety Report 7024471-X (Version None)
Quarter: 2010Q4

REPORT INFORMATION
  Report Type: 
  Country: None (occurrence: None)
  Receive Date: 20101001
  Receipt Date: 20100924
  Transmission Date: 20110411
  Serious: Yes (Hospitalization)
  Sender: FDA-Public Use
  Company Number: A0789854A

PATIENT
  Age: 65 Year
  Sex: Female
  Weight: 99.5 kg

DRUGS (1)
  1. ROSIGLITAZONE [Suspect]
     Dosage: 8MG PER DAY
     Route: 048
     Dates: start: 20060701, end: 20070601

REACTIONS (5)
  - CHEST PAIN [None]
  - CORONARY ARTERY DISEASE [None]
  - INFARCTION [None]
  - MYOCARDIAL INFARCTION [None]
  - MYOCARDIAL ISCHAEMIA [None]
